FAERS Safety Report 21414700 (Version 1)
Quarter: 2022Q4

REPORT INFORMATION
  Report Type: Spontaneous
  Country: VN (occurrence: None)
  Receive Date: 20221006
  Receipt Date: 20221006
  Transmission Date: 20230113
  Serious: Yes (Other)
  Sender: FDA-Public Use
  Company Number: VN-ROCHE-3141069

PATIENT
  Age: 81 Year
  Sex: Male

DRUGS (3)
  1. POLIVY [Suspect]
     Active Substance: POLATUZUMAB VEDOTIN-PIIQ
     Indication: Double hit lymphoma
     Route: 042
     Dates: start: 20220623
  2. BENDAMUSTINE [Suspect]
     Active Substance: BENDAMUSTINE
     Indication: Double hit lymphoma
     Route: 042
     Dates: start: 20220623
  3. MABTHERA [Suspect]
     Active Substance: RITUXIMAB
     Indication: Double hit lymphoma
     Route: 042
     Dates: start: 20220623

REACTIONS (3)
  - Leukopenia [Not Recovered/Not Resolved]
  - Myelosuppression [Unknown]
  - Off label use [Unknown]
